FAERS Safety Report 15103170 (Version 3)
Quarter: 2018Q3

REPORT INFORMATION
  Report Type: Report from Study
  Country: CO (occurrence: CO)
  Receive Date: 20180703
  Receipt Date: 20180830
  Transmission Date: 20181010
  Serious: Yes (Other)
  Sender: FDA-Public Use
  Company Number: CO-BAYER-2018-120774

PATIENT
  Age: 60 Year
  Sex: Female

DRUGS (4)
  1. TOPIRAMATE. [Suspect]
     Active Substance: TOPIRAMATE
     Dosage: UNK
     Dates: start: 2016, end: 201802
  2. ACETAMINOPHEN. [Concomitant]
     Active Substance: ACETAMINOPHEN
     Dosage: UNK
  3. PREGABALIN. [Suspect]
     Active Substance: PREGABALIN
     Dosage: UNK
     Dates: start: 2016, end: 201802
  4. BETAFERON [Suspect]
     Active Substance: INTERFERON BETA-1B
     Indication: RELAPSING-REMITTING MULTIPLE SCLEROSIS
     Dosage: 1.0 ML, QOD
     Route: 058
     Dates: start: 20150606

REACTIONS (11)
  - Hepatic steatosis [Not Recovered/Not Resolved]
  - Urticaria [Unknown]
  - Toxicity to various agents [Not Recovered/Not Resolved]
  - Headache [Not Recovered/Not Resolved]
  - Injection site reaction [Not Recovered/Not Resolved]
  - Injection site pain [Not Recovered/Not Resolved]
  - Migraine [None]
  - Bladder prolapse [Not Recovered/Not Resolved]
  - Hepatitis [Not Recovered/Not Resolved]
  - Dermatitis allergic [Unknown]
  - Dizziness [Not Recovered/Not Resolved]

NARRATIVE: CASE EVENT DATE: 201805
